FAERS Safety Report 7170646-9 (Version None)
Quarter: 2010Q4

REPORT INFORMATION
  Report Type: 
  Country: None (occurrence: None)
  Receive Date: 20101217
  Receipt Date: 20101213
  Transmission Date: 20110411
  Serious: Yes (Other)
  Sender: FDA-Public Use
  Company Number: B0669461A

PATIENT
  Sex: Female

DRUGS (6)
  1. ZINNAT [Suspect]
     Indication: PRODUCT USED FOR UNKNOWN INDICATION
     Dosage: 1UNIT SINGLE DOSE
     Route: 048
     Dates: start: 20100301, end: 20100301
  2. LYRICA [Concomitant]
     Indication: PRODUCT USED FOR UNKNOWN INDICATION
     Route: 048
  3. LYSANXIA [Concomitant]
     Indication: PRODUCT USED FOR UNKNOWN INDICATION
     Route: 048
  4. DILTIAZEM [Concomitant]
     Indication: PRODUCT USED FOR UNKNOWN INDICATION
     Route: 048
  5. PARIET [Concomitant]
     Indication: PRODUCT USED FOR UNKNOWN INDICATION
     Route: 048
  6. OMACOR [Concomitant]
     Indication: PRODUCT USED FOR UNKNOWN INDICATION
     Route: 048

REACTIONS (9)
  - ANAPHYLACTIC SHOCK [None]
  - DIARRHOEA [None]
  - LOSS OF CONSCIOUSNESS [None]
  - PARAESTHESIA ORAL [None]
  - PRURITUS [None]
  - SHOCK [None]
  - SKIN TEST POSITIVE [None]
  - TYPE I HYPERSENSITIVITY [None]
  - URTICARIA [None]
